FAERS Safety Report 9763424 (Version 1)
Quarter: 2013Q4

REPORT INFORMATION
  Report Type: Spontaneous
  Country: US (occurrence: US)
  Receive Date: 20131216
  Receipt Date: 20131216
  Transmission Date: 20140711
  Serious: No
  Sender: FDA-Public Use
  Company Number: US-BIOGENIDEC-2013BI103704

PATIENT
  Age: 51 Year
  Sex: Male

DRUGS (7)
  1. TECFIDERA [Suspect]
     Indication: MULTIPLE SCLEROSIS
     Route: 048
  2. VENLAFAXINE [Concomitant]
  3. LISINOPRIL [Concomitant]
  4. LEVOTHYROXIN [Concomitant]
  5. VITAMIN B-12 [Concomitant]
  6. FISH OIL [Concomitant]
  7. TYLENOL [Concomitant]

REACTIONS (2)
  - Flushing [Unknown]
  - Nausea [Unknown]
